FAERS Safety Report 16566043 (Version 2)
Quarter: 2019Q3

REPORT INFORMATION
  Report Type: Spontaneous
  Country: US (occurrence: US)
  Receive Date: 20190712
  Receipt Date: 20190729
  Transmission Date: 20191004
  Serious: Yes (Other)
  Sender: FDA-Public Use
  Company Number: US-PFIZER INC-2019293312

PATIENT
  Age: 89 Year
  Sex: Male

DRUGS (2)
  1. BOSULIF [Suspect]
     Active Substance: BOSUTINIB MONOHYDRATE
     Indication: DEMENTIA ALZHEIMER^S TYPE
     Dosage: 100 MG, ALTERNATE DAY (1-100 MG OF EVERY OTHER DAY)
  2. BOSULIF [Suspect]
     Active Substance: BOSUTINIB MONOHYDRATE
     Dosage: 200 MG, ALTERNATE DAY (2-100 MG EVERY OTHER DAY)

REACTIONS (4)
  - Off label use [Unknown]
  - Deafness [Unknown]
  - Product use in unapproved indication [Unknown]
  - Amnesia [Unknown]
